FAERS Safety Report 17018239 (Version 1)
Quarter: 2019Q4

REPORT INFORMATION
  Report Type: Spontaneous
  Country: US (occurrence: US)
  Receive Date: 20191111
  Receipt Date: 20191111
  Transmission Date: 20200122
  Serious: Yes (Other)
  Sender: FDA-Public Use
  Company Number: US-JAZZ-2014-US-006593

PATIENT
  Age: 27 Year
  Sex: Female
  Weight: 71.2 kg

DRUGS (3)
  1. XYREM [Suspect]
     Active Substance: SODIUM OXYBATE
     Indication: NARCOLEPSY
     Dosage: 2.25 G, BID
     Route: 048
     Dates: start: 20140315, end: 2014
  2. XYREM [Suspect]
     Active Substance: SODIUM OXYBATE
     Dosage: DOSE ADJUSTMENTS
     Route: 048
     Dates: start: 2014, end: 2014
  3. XYREM [Suspect]
     Active Substance: SODIUM OXYBATE
     Dosage: 4.5 G, BID
     Route: 048
     Dates: start: 2014

REACTIONS (5)
  - Sinus pain [Not Recovered/Not Resolved]
  - Constipation [Not Recovered/Not Resolved]
  - Impaired gastric emptying [Not Recovered/Not Resolved]
  - Therapeutic response decreased [Not Recovered/Not Resolved]
  - Oropharyngeal pain [Not Recovered/Not Resolved]

NARRATIVE: CASE EVENT DATE: 201405
